FAERS Safety Report 14310090 (Version 9)
Quarter: 2018Q2

REPORT INFORMATION
  Report Type: Spontaneous
  Country: CZ (occurrence: CZ)
  Receive Date: 20171220
  Receipt Date: 20180430
  Transmission Date: 20180711
  Serious: Yes (Life-Threatening, Hospitalization, Other)
  Sender: FDA-Public Use
  Company Number: PHHY2017CZ187634

PATIENT
  Age: 82 Year
  Sex: Female

DRUGS (46)
  1. FLUCONAZOLE. [Suspect]
     Active Substance: FLUCONAZOLE
     Indication: PNEUMONIA
     Dosage: UNK
     Route: 048
  2. LEVETIRACETAM. [Suspect]
     Active Substance: LEVETIRACETAM
     Dosage: 40 MILLIGRAM(S)/KILOGRAM
     Route: 042
  3. VALPROATE [Suspect]
     Active Substance: VALPROIC ACID
     Indication: STATUS EPILEPTICUS
     Dosage: 30 MG/KG, UNK
     Route: 042
  4. CYNT [Concomitant]
     Route: 048
  5. GLYCINE. [Concomitant]
     Active Substance: GLYCINE
     Route: 065
  6. PARACETAMOL [Suspect]
     Active Substance: ACETAMINOPHEN
     Indication: PAIN
     Dosage: UNK
     Route: 048
  7. PROPOFOL. [Suspect]
     Active Substance: PROPOFOL
     Indication: GENERALISED TONIC-CLONIC SEIZURE
     Dosage: UNK
     Route: 065
  8. LEVETIRACETAM. [Suspect]
     Active Substance: LEVETIRACETAM
     Indication: GENERALISED TONIC-CLONIC SEIZURE
     Dosage: 3000 MG, UNK
     Route: 065
  9. LISALGIL [Suspect]
     Active Substance: METAMIZOLE SODIUM
     Route: 048
  10. KAPIDIN [Concomitant]
     Active Substance: LERCANIDIPINE HYDROCHLORIDE
     Indication: PRODUCT USED FOR UNKNOWN INDICATION
  11. TRITACE [Concomitant]
     Active Substance: RAMIPRIL
     Indication: PRODUCT USED FOR UNKNOWN INDICATION
  12. LOKREN [Concomitant]
     Active Substance: BETAXOLOL HYDROCHLORIDE
     Dosage: UNK
     Route: 048
  13. GLYCINE. [Concomitant]
     Active Substance: GLYCINE
     Indication: PRODUCT USED FOR UNKNOWN INDICATION
  14. VALPROIC ACID. [Suspect]
     Active Substance: VALPROIC ACID
     Dosage: 30 MG/KG, UNK
     Route: 042
  15. VALPROIC ACID. [Suspect]
     Active Substance: VALPROIC ACID
     Indication: SEIZURE
     Dosage: 30 MG/KILOGRAM
     Route: 042
  16. IBUPROFEN. [Suspect]
     Active Substance: IBUPROFEN
     Indication: PAIN
     Route: 048
  17. METAMIZOLE [Suspect]
     Active Substance: METAMIZOLE
     Indication: PAIN
  18. GODASAL [Concomitant]
     Active Substance: ASPIRIN\GLYCINE
     Route: 048
  19. PHENYTOIN. [Suspect]
     Active Substance: PHENYTOIN
     Indication: GENERALISED TONIC-CLONIC SEIZURE
  20. AMOXICILLIN. [Suspect]
     Active Substance: AMOXICILLIN
     Indication: PNEUMONIA
  21. LISALGIL [Suspect]
     Active Substance: METAMIZOLE SODIUM
     Indication: PAIN
  22. METAMIZOLE [Suspect]
     Active Substance: METAMIZOLE
     Route: 065
  23. CYNT [Concomitant]
     Indication: PRODUCT USED FOR UNKNOWN INDICATION
  24. VALPROIC ACID. [Suspect]
     Active Substance: VALPROIC ACID
     Indication: PARTIAL SEIZURES
     Dosage: 30 MG/KILOGRAM
     Route: 042
  25. AMOXICILLIN. [Suspect]
     Active Substance: AMOXICILLIN
     Route: 048
  26. KAPIDIN [Concomitant]
     Active Substance: LERCANIDIPINE HYDROCHLORIDE
     Route: 048
  27. DIAZEPAM. [Suspect]
     Active Substance: DIAZEPAM
     Indication: PARTIAL SEIZURES
     Dosage: UNK
     Route: 042
  28. MILURIT [Suspect]
     Active Substance: ALLOPURINOL
     Route: 048
  29. MILURIT [Suspect]
     Active Substance: ALLOPURINOL
     Indication: GOUT
  30. GODASAL [Concomitant]
     Active Substance: ASPIRIN\GLYCINE
     Indication: PRODUCT USED FOR UNKNOWN INDICATION
  31. VASILIP [Concomitant]
     Active Substance: SIMVASTATIN
     Route: 048
  32. GLURENORM [Concomitant]
     Active Substance: GLIQUIDONE
     Route: 048
  33. PHENYTOIN. [Suspect]
     Active Substance: PHENYTOIN
     Indication: SEIZURE
  34. DIAZEPAM. [Suspect]
     Active Substance: DIAZEPAM
     Indication: HYPERTENSION
  35. DIAZEPAM. [Suspect]
     Active Substance: DIAZEPAM
     Indication: GENERALISED TONIC-CLONIC SEIZURE
  36. LEVETIRACETAM. [Suspect]
     Active Substance: LEVETIRACETAM
     Indication: PARTIAL SEIZURES
     Dosage: 40 MG/KG, UNK
     Route: 042
  37. VASILIP [Concomitant]
     Active Substance: SIMVASTATIN
     Indication: PRODUCT USED FOR UNKNOWN INDICATION
  38. EUTHYROX [Concomitant]
     Active Substance: LEVOTHYROXINE SODIUM
     Route: 048
  39. LOKREN [Concomitant]
     Active Substance: BETAXOLOL HYDROCHLORIDE
     Indication: PRODUCT USED FOR UNKNOWN INDICATION
  40. GLURENORM [Concomitant]
     Active Substance: GLIQUIDONE
     Indication: PRODUCT USED FOR UNKNOWN INDICATION
  41. PHENYTOIN. [Suspect]
     Active Substance: PHENYTOIN
     Indication: PARTIAL SEIZURES
     Dosage: 20 MG/KG, UNK
     Route: 042
  42. FLUCONAZOLE. [Suspect]
     Active Substance: FLUCONAZOLE
     Indication: ANTIFUNGAL TREATMENT
  43. CEFTRIAXONE. [Suspect]
     Active Substance: CEFTRIAXONE
     Indication: PNEUMONIA
     Dosage: UNK
     Route: 048
  44. VALPROIC ACID. [Suspect]
     Active Substance: VALPROIC ACID
     Indication: SEIZURE
  45. EUTHYROX [Concomitant]
     Active Substance: LEVOTHYROXINE SODIUM
     Indication: PRODUCT USED FOR UNKNOWN INDICATION
  46. TRITACE [Concomitant]
     Active Substance: RAMIPRIL
     Route: 048

REACTIONS (8)
  - Sopor [Recovering/Resolving]
  - Depressed level of consciousness [Recovering/Resolving]
  - Drug ineffective [Unknown]
  - Stevens-Johnson syndrome [Recovered/Resolved with Sequelae]
  - Status epilepticus [Recovering/Resolving]
  - Laceration [Recovered/Resolved with Sequelae]
  - Pneumonia [Recovering/Resolving]
  - Rash [Recovered/Resolved with Sequelae]
